FAERS Safety Report 13188234 (Version 1)
Quarter: 2017Q1

REPORT INFORMATION
  Report Type: Spontaneous
  Country: GB (occurrence: GB)
  Receive Date: 20170206
  Receipt Date: 20170206
  Transmission Date: 20170428
  Serious: Yes (Hospitalization)
  Sender: FDA-Public Use
  Company Number: GB-TEVA-735659ACC

PATIENT
  Sex: Female

DRUGS (1)
  1. OMEPRAZOLE. [Suspect]
     Active Substance: OMEPRAZOLE
     Dosage: 40 MILLIGRAM DAILY;
     Route: 048
     Dates: end: 20170112

REACTIONS (3)
  - Diarrhoea [Unknown]
  - Electrolyte imbalance [Unknown]
  - Seizure [Unknown]
